FAERS Safety Report 9058761 (Version 2)
Quarter: 2013Q2

REPORT INFORMATION
  Report Type: Spontaneous
  Country: BR (occurrence: BR)
  Receive Date: 20130204
  Receipt Date: 20130415
  Transmission Date: 20140414
  Serious: Yes (Other)
  Sender: FDA-Public Use
  Company Number: PHHY2013BR010293

PATIENT
  Sex: Female
  Weight: 50 kg

DRUGS (9)
  1. ACLASTA [Suspect]
     Indication: OSTEOPOROSIS
     Dosage: 5 MG, ANNUALLY
     Route: 042
     Dates: start: 2011
  2. ACLASTA [Suspect]
     Dosage: 5 MG,
     Route: 042
  3. TEGRETOL [Concomitant]
     Indication: NERVOUS SYSTEM DISORDER
     Dosage: 3 DF, DAILY
     Route: 048
     Dates: start: 1986
  4. RIVOTRIL [Concomitant]
     Indication: NERVOUS SYSTEM DISORDER
     Dosage: 0.5 DF, DAILY
     Route: 048
  5. DEPAKOTE [Concomitant]
     Indication: NERVOUS SYSTEM DISORDER
     Dosage: 2 DF, DAILY
     Route: 048
  6. OLCADIL [Concomitant]
     Indication: NERVOUS SYSTEM DISORDER
     Dosage: 1 DF, DAILY
     Route: 048
  7. RAZAPINA [Concomitant]
     Indication: NERVOUS SYSTEM DISORDER
     Dosage: 0.5 DF, DAILY
     Route: 048
     Dates: start: 201210
  8. CALCIUM [Concomitant]
     Dosage: UNK UKN, DAILY
     Route: 048
     Dates: start: 20130131
  9. VITAMIN D NOS [Concomitant]
     Dosage: UNK UKN, DAILY
     Route: 048
     Dates: start: 20130131

REACTIONS (3)
  - Fall [Recovered/Resolved]
  - Rib fracture [Recovered/Resolved]
  - Muscle strain [Recovering/Resolving]
